FAERS Safety Report 6535444-5 (Version None)
Quarter: 2010Q1

REPORT INFORMATION
  Report Type: 
  Country: None (occurrence: None)
  Receive Date: 20100113
  Receipt Date: 20100107
  Transmission Date: 20100710
  Serious: Yes (Other)
  Sender: FDA-Public Use
  Company Number: ES-TYCO HEALTHCARE/MALLINCKRODT-T200902255

PATIENT
  Age: 70 Year

DRUGS (3)
  1. OPTIRAY 350 [Suspect]
     Indication: ARTERIOGRAM CORONARY
     Dosage: UNK
  2. NORMAL SALINE [Concomitant]
     Indication: FLUID REPLACEMENT
     Dosage: 1000 ML, UNK
     Route: 042
  3. FLUIMUCIL [Concomitant]
     Dosage: 1200 MG, BID
     Route: 048

REACTIONS (1)
  - NEPHROPATHY TOXIC [None]
